FAERS Safety Report 7128143-2 (Version None)
Quarter: 2010Q4

REPORT INFORMATION
  Report Type: 
  Country: None (occurrence: None)
  Receive Date: 20101130
  Receipt Date: 20101116
  Transmission Date: 20110411
  Serious: Yes (Other)
  Sender: FDA-Public Use
  Company Number: US-ASTRAZENECA-2010SE23796

PATIENT
  Age: 80 Year
  Sex: Female

DRUGS (3)
  1. ARIMIDEX [Suspect]
     Indication: BREAST CANCER
     Route: 048
     Dates: start: 20060101
  2. ARIMIDEX [Suspect]
     Route: 048
     Dates: start: 20100101
  3. FASLODEX [Suspect]
     Indication: BREAST CANCER
     Route: 030
     Dates: start: 20100401, end: 20100520

REACTIONS (7)
  - BLOOD CALCIUM [None]
  - FATIGUE [None]
  - GASTRIC DISORDER [None]
  - GASTRITIS [None]
  - NAUSEA [None]
  - THYROID NEOPLASM [None]
  - URINARY TRACT INFECTION [None]
